FAERS Safety Report 7481378-1 (Version None)
Quarter: 2011Q2

REPORT INFORMATION
  Report Type: 
  Country: None (occurrence: None)
  Receive Date: 20110516
  Receipt Date: 20110426
  Transmission Date: 20111010
  Serious: No
  Sender: FDA-Public Use
  Company Number: US-B.I. PHARMACEUTICALS,INC./RIDGEFIELD-2011-BP-07522BP

PATIENT
  Age: 79 Year
  Sex: Female

DRUGS (6)
  1. DIGOXIN [Concomitant]
     Indication: ATRIAL FIBRILLATION
     Dosage: 0.125 MG
     Route: 048
  2. ATENOLOL [Concomitant]
     Indication: ATRIAL FIBRILLATION
     Dosage: 50 MG
     Route: 048
  3. SIMVASTATIN [Concomitant]
     Indication: DYSLIPIDAEMIA
     Route: 048
  4. LOSARTAN POTASSIUM AND HYDROCHLOROTHIAZIDE [Concomitant]
     Indication: HYPERTENSION
     Route: 048
  5. PRADAXA [Suspect]
     Indication: ATRIAL FIBRILLATION
     Dosage: 300 MG
     Route: 048
     Dates: start: 20110201
  6. TIMOLOL MALEATE [Concomitant]
     Indication: GLAUCOMA

REACTIONS (2)
  - DYSPEPSIA [None]
  - CHEST PAIN [None]
